FAERS Safety Report 7346990-9 (Version None)
Quarter: 2011Q1

REPORT INFORMATION
  Report Type: 
  Country: None (occurrence: None)
  Receive Date: 20110311
  Receipt Date: 20110225
  Transmission Date: 20110831
  Serious: Yes (Congenital Anomaly)
  Sender: FDA-Public Use
  Company Number: PHHY2011IT18839

PATIENT

DRUGS (4)
  1. RIFAXIMIN [Suspect]
     Route: 064
  2. DYDROGESTERONE TAB [Suspect]
     Route: 064
  3. DICLOFENAC [Suspect]
     Indication: PAIN
     Route: 064
  4. METOCLOPRAMIDE HCL [Suspect]
     Route: 064

REACTIONS (3)
  - DRUG EXPOSURE DURING PREGNANCY [None]
  - CATARACT CONGENITAL [None]
  - MATERNAL DRUGS AFFECTING FOETUS [None]
